FAERS Safety Report 10037214 (Version 3)
Quarter: 2014Q2

REPORT INFORMATION
  Report Type: Spontaneous
  Country: US (occurrence: US)
  Receive Date: 20140326
  Receipt Date: 20140603
  Transmission Date: 20141212
  Serious: Yes (Life-Threatening, Hospitalization)
  Sender: FDA-Public Use
  Company Number: 2014SP001567

PATIENT
  Age: 59 Year
  Sex: Male
  Weight: 69 kg

DRUGS (5)
  1. APTIOM [Suspect]
     Indication: CONVULSION
     Route: 048
     Dates: start: 20140425, end: 20140427
  2. KEPPRA [Concomitant]
     Indication: CONVULSION
  3. TRILEPTAL [Concomitant]
     Indication: CONVULSION
     Dates: end: 20140425
  4. LYRICA [Concomitant]
  5. IMMUNOSUPPRESSANTS [Concomitant]
     Indication: LIVER TRANSPLANT

REACTIONS (3)
  - Atrioventricular block complete [Recovered/Resolved]
  - Bradycardia [Recovered/Resolved]
  - Convulsion [Recovered/Resolved]
